FAERS Safety Report 4521584-9 (Version None)
Quarter: 2004Q4

REPORT INFORMATION
  Report Type: 
  Country: None (occurrence: None)
  Receive Date: 20041206
  Receipt Date: 20041124
  Transmission Date: 20050328
  Serious: Yes (Hospitalization, Other)
  Sender: FDA-Public Use
  Company Number: KII-2004-0014071

PATIENT
  Age: 50 Year
  Sex: Female

DRUGS (1)
  1. OXYCONTIN [Suspect]
     Dosage: ORAL
     Route: 048

REACTIONS (9)
  - CARDIAC FAILURE CONGESTIVE [None]
  - COUGH [None]
  - DIZZINESS [None]
  - DYSPNOEA [None]
  - HYPOTENSION [None]
  - INCREASED UPPER AIRWAY SECRETION [None]
  - MEDICATION ERROR [None]
  - PULMONARY OEDEMA [None]
  - TACHYCARDIA [None]
